FAERS Safety Report 14248350 (Version 1)
Quarter: 2017Q4

REPORT INFORMATION
  Report Type: Spontaneous
  Country: SE (occurrence: SE)
  Receive Date: 20171204
  Receipt Date: 20171204
  Transmission Date: 20180321
  Serious: Yes (Other)
  Sender: FDA-Public Use
  Company Number: SE-TEVA-2017-SE-827466

PATIENT
  Sex: Male

DRUGS (1)
  1. RAMIPRIL ACTAVIS [Suspect]
     Active Substance: RAMIPRIL
     Route: 048

REACTIONS (4)
  - Syncope [Unknown]
  - Fall [Unknown]
  - Back pain [Unknown]
  - Back injury [Unknown]
